FAERS Safety Report 14995612 (Version 1)
Quarter: 2018Q2

REPORT INFORMATION
  Report Type: Spontaneous
  Country: US (occurrence: US)
  Receive Date: 20180521
  Receipt Date: 20180521
  Transmission Date: 20180711
  Serious: Yes (Hospitalization)
  Sender: FDA-Public Use
  Company Number: None

PATIENT
  Age: 4 Year
  Sex: Male

DRUGS (2)
  1. MCT OIL [Concomitant]
  2. OMNITROPE [Suspect]
     Active Substance: SOMATROPIN
     Indication: CONGENITAL ANOMALY
     Route: 058
     Dates: start: 20180131

REACTIONS (1)
  - Tracheal operation [None]

NARRATIVE: CASE EVENT DATE: 20180508
